FAERS Safety Report 8250202-1 (Version None)
Quarter: 2012Q2

REPORT INFORMATION
  Report Type: 
  Country: None (occurrence: None)
  Receive Date: 20120402
  Receipt Date: 20120327
  Transmission Date: 20120825
  Serious: Yes (Hospitalization, Other)
  Sender: FDA-Public Use
  Company Number: FR-ASTRAZENECA-2012SE14534

PATIENT
  Age: 48 Year
  Sex: Male

DRUGS (9)
  1. MOTILIUM [Suspect]
     Route: 048
     Dates: start: 20060701
  2. CELIPROLOL [Suspect]
     Route: 048
     Dates: start: 20050101
  3. VOLTAREN [Suspect]
     Route: 048
     Dates: start: 20101101
  4. MORPHINE SULFATE [Suspect]
     Route: 048
     Dates: start: 20061001
  5. ANAFRANIL [Suspect]
     Dosage: 100 MG DAILY ( 25 MG IN THE MERONING AND 75 MG IN THE EVENING)
     Route: 048
     Dates: start: 20110402
  6. OMEPRAZOLE [Suspect]
     Route: 048
     Dates: start: 20050101
  7. ACETAMINOPHEN [Suspect]
     Route: 048
     Dates: start: 20050101
  8. PAMIDRONATE DISODIUM [Suspect]
     Route: 042
     Dates: start: 20111017, end: 20111212
  9. MORPHINE SULFATE [Suspect]
     Route: 048
     Dates: start: 20060701

REACTIONS (13)
  - SCLERODERMA [None]
  - C-REACTIVE PROTEIN INCREASED [None]
  - BLOOD ALKALINE PHOSPHATASE INCREASED [None]
  - HYPERGAMMAGLOBULINAEMIA [None]
  - PULMONARY ARTERIAL HYPERTENSION [None]
  - CHOLESTASIS [None]
  - GAMMA-GLUTAMYLTRANSFERASE INCREASED [None]
  - LYME DISEASE [None]
  - PANCYTOPENIA [None]
  - RENAL CANCER [None]
  - SIALOADENITIS [None]
  - BILIARY CIRRHOSIS PRIMARY [None]
  - INFECTION [None]
